FAERS Safety Report 21990754 (Version 1)
Quarter: 2023Q1

REPORT INFORMATION
  Report Type: Spontaneous
  Country: US (occurrence: US)
  Receive Date: 20230214
  Receipt Date: 20230214
  Transmission Date: 20230417
  Serious: No
  Sender: FDA-Public Use
  Company Number: US-ANIPHARMA-2022-US-028240

PATIENT
  Age: 44 Year
  Sex: Female

DRUGS (1)
  1. CORTICOTROPIN [Suspect]
     Active Substance: CORTICOTROPIN
     Indication: Sjogren^s syndrome
     Dosage: INJECT 40 UNITS (0.5ML) INTRAMUSCULARLY Q3D AS DIRECTED.*DISCARD 28 DAYS AFTER FIRST INJECTION*
     Route: 030
     Dates: start: 202210

REACTIONS (2)
  - Confusional state [Unknown]
  - Blood pressure abnormal [Unknown]
